FAERS Safety Report 26091316 (Version 2)
Quarter: 2025Q4

REPORT INFORMATION
  Report Type: Spontaneous
  Country: CO (occurrence: CO)
  Receive Date: 20251126
  Receipt Date: 20251221
  Transmission Date: 20260118
  Serious: Yes (Hospitalization)
  Sender: Vantive US Healthcare
  Company Number: CO-VANTIVE-2025VAN005395

PATIENT
  Age: 65 Year
  Sex: Female
  Weight: 72 kg

DRUGS (7)
  1. DIANEAL [Suspect]
     Active Substance: CALCIUM CHLORIDE\DEXTROSE\MAGNESIUM CHLORIDE\SODIUM CHLORIDE\SODIUM LACTATE
  2. OLMESARTAN [Concomitant]
     Active Substance: OLMESARTAN
     Dosage: 40 MG
  3. FUROSEMIDE [Concomitant]
     Active Substance: FUROSEMIDE
  4. CALCIUM CARBONATE [Concomitant]
     Active Substance: CALCIUM CARBONATE
     Dosage: 600 MG
  5. PREGABALIN [Concomitant]
     Active Substance: PREGABALIN
     Indication: Diabetes mellitus
  6. DAPAGLIFLOZIN [Concomitant]
     Active Substance: DAPAGLIFLOZIN
     Indication: Diabetes mellitus
  7. THIOCTIC ACID [Concomitant]
     Active Substance: THIOCTIC ACID
     Indication: Diabetes mellitus
     Dosage: 600 MG

REACTIONS (5)
  - Tremor [Recovered/Resolved]
  - Device related infection [Recovered/Resolved]
  - Abdominal pain [Recovered/Resolved]
  - Vomiting [Recovered/Resolved]
  - Device use error [Unknown]

NARRATIVE: CASE EVENT DATE: 20251122
